FAERS Safety Report 5836149-6 (Version None)
Quarter: 2008Q3

REPORT INFORMATION
  Report Type: 
  Country: None (occurrence: None)
  Receive Date: 20080805
  Receipt Date: 20080730
  Transmission Date: 20090109
  Serious: Yes (Death)
  Sender: FDA-Public Use
  Company Number: 163-21880-08071773

PATIENT
  Age: 5 Year
  Sex: Female

DRUGS (1)
  1. REVLIMID [Suspect]
     Indication: BRAIN NEOPLASM MALIGNANT
     Dosage: 15 MG,1N 1 D, ORAL
     Route: 048
     Dates: start: 20080213, end: 20080301

REACTIONS (1)
  - DEATH [None]
